FAERS Safety Report 12971717 (Version 1)
Quarter: 2016Q4

REPORT INFORMATION
  Report Type: Spontaneous
  Country: UA (occurrence: UA)
  Receive Date: 20161123
  Receipt Date: 20161123
  Transmission Date: 20170207
  Serious: Yes (Hospitalization, Other)
  Sender: FDA-Public Use
  Company Number: UA-ASTRAZENECA-2016SF00246

PATIENT
  Age: 19306 Day
  Sex: Male
  Weight: 83 kg

DRUGS (6)
  1. TRITACE [Concomitant]
     Active Substance: RAMIPRIL
     Dosage: 2,5MG
  2. BRILINTA [Suspect]
     Active Substance: TICAGRELOR
     Indication: ACUTE MYOCARDIAL INFARCTION
     Route: 048
     Dates: start: 20160601
  3. ASPIRIN CARDIO [Concomitant]
     Active Substance: ASPIRIN
     Dosage: 1000MG
  4. BISOPROLOL [Concomitant]
     Active Substance: BISOPROLOL
     Dosage: 2,5MG
  5. PREDUCTAL MR [Concomitant]
     Active Substance: TRIMETAZIDINE DIHYDROCHLORIDE
     Dosage: ONE TABLET
  6. ROXERA [Concomitant]
     Route: 048

REACTIONS (3)
  - Complication associated with device [Unknown]
  - Angina pectoris [Recovered/Resolved]
  - Asthenia [Not Recovered/Not Resolved]

NARRATIVE: CASE EVENT DATE: 20160701
